FAERS Safety Report 8434313-3 (Version None)
Quarter: 2012Q2

REPORT INFORMATION
  Report Type: 
  Country: None (occurrence: None)
  Receive Date: 20120613
  Receipt Date: 20120612
  Transmission Date: 20120825
  Serious: Yes (Death, Other)
  Sender: FDA-Public Use
  Company Number: PHHY2012IT050046

PATIENT
  Age: 18 Year
  Sex: Male

DRUGS (5)
  1. CYCLOSPORINE [Suspect]
     Indication: PROPHYLAXIS AGAINST GRAFT VERSUS HOST DISEASE
  2. FLUDARABINE PHOSPHATE [Concomitant]
  3. TREOSULFAN [Concomitant]
  4. THIOTEPA [Concomitant]
  5. ANTI-THYMOCYTE GLOBULIN NOS [Concomitant]

REACTIONS (13)
  - DEPRESSION [None]
  - SYSTEMIC CANDIDA [None]
  - GASTROINTESTINAL HAEMORRHAGE [None]
  - COMA [None]
  - GRAFT VERSUS HOST DISEASE IN INTESTINE [None]
  - GRAFT VERSUS HOST DISEASE IN SKIN [None]
  - CANDIDA SEPSIS [None]
  - GRAFT VERSUS HOST DISEASE [None]
  - CEREBRAL FUNGAL INFECTION [None]
  - CENTRAL NERVOUS SYSTEM LESION [None]
  - DEPRESSIVE SYMPTOM [None]
  - ACUTE GRAFT VERSUS HOST DISEASE IN LIVER [None]
  - DECEREBRATION [None]
